FAERS Safety Report 6448634-7 (Version None)
Quarter: 2009Q4

REPORT INFORMATION
  Report Type: 
  Country: None (occurrence: None)
  Receive Date: 20091120
  Receipt Date: 20091118
  Transmission Date: 20100525
  Serious: Yes (Disabling, Other)
  Sender: FDA-Public Use
  Company Number: US-ELI_LILLY_AND_COMPANY-US200911004756

PATIENT
  Sex: Female

DRUGS (2)
  1. HUMULIN N [Suspect]
     Indication: DIABETES MELLITUS
     Dates: start: 19890101
  2. HUMULIN N [Suspect]
     Dates: start: 19890101

REACTIONS (7)
  - BACK DISORDER [None]
  - BALANCE DISORDER [None]
  - BLOOD GLUCOSE INCREASED [None]
  - DIALYSIS DEVICE INSERTION [None]
  - DRUG INEFFECTIVE [None]
  - FEAR [None]
  - KNEE ARTHROPLASTY [None]
